FAERS Safety Report 8970780 (Version 4)
Quarter: 2013Q4

REPORT INFORMATION
  Report Type: Spontaneous
  Country: US (occurrence: US)
  Receive Date: 20121217
  Receipt Date: 20131004
  Transmission Date: 20140711
  Serious: Yes (Hospitalization, Other)
  Sender: FDA-Public Use
  Company Number: US-PFIZER INC-2012271008

PATIENT
  Age: 53 Year
  Sex: Female
  Weight: 99.77 kg

DRUGS (11)
  1. NEURONTIN [Suspect]
     Indication: NEURALGIA
     Dosage: 300 MG, 3X/DAY
     Route: 048
     Dates: start: 2011
  2. NEURONTIN [Suspect]
     Indication: NEURALGIA
  3. NEURONTIN [Suspect]
     Indication: BACK PAIN
  4. NEURONTIN [Suspect]
     Indication: ARTHRALGIA
  5. NEURONTIN [Suspect]
     Indication: PAIN IN EXTREMITY
  6. ARTHROTEC [Suspect]
     Indication: ARTHRITIS
     Dosage: 75MG/200MCG, 2X/DAY
     Route: 048
     Dates: start: 2011
  7. ARTHROTEC [Suspect]
     Indication: OSTEOARTHRITIS
     Dosage: 75MG/200MCG, 2X/DAY
     Route: 048
  8. ARTHROTEC [Suspect]
     Dosage: 75MG/200MCG, 1X/DAY (IN NIGHT)
     Route: 048
  9. LORTAB [Concomitant]
     Dosage: UNK, 3X/DAY
  10. DOXEPIN [Concomitant]
     Indication: SLEEP DISORDER
     Dosage: UNK, 1X/DAY
  11. NEURONTIN [Concomitant]
     Dosage: UNK

REACTIONS (12)
  - Nephrolithiasis [Not Recovered/Not Resolved]
  - Irritable bowel syndrome [Unknown]
  - Gastric infection [Not Recovered/Not Resolved]
  - Malaise [Not Recovered/Not Resolved]
  - Poor peripheral circulation [Not Recovered/Not Resolved]
  - Cardiac disorder [Unknown]
  - Pain [Not Recovered/Not Resolved]
  - Drug intolerance [Unknown]
  - Nausea [Unknown]
  - Feeling abnormal [Unknown]
  - Regurgitation [Unknown]
  - Pain in extremity [Unknown]
